FAERS Safety Report 7619599-7 (Version None)
Quarter: 2011Q3

REPORT INFORMATION
  Report Type: 
  Country: None (occurrence: None)
  Receive Date: 20110719
  Receipt Date: 20090412
  Transmission Date: 20111222
  Serious: Yes (Death, Other)
  Sender: FDA-Public Use
  Company Number: US-BAYER-200917865NA

PATIENT
  Age: 68 Year
  Sex: Male

DRUGS (6)
  1. HYDROXYZINE HCL [Concomitant]
     Dosage: 25 MG, QD
     Route: 048
  2. CIMETIDINE [Concomitant]
     Dosage: 30 MG, TID
     Route: 048
  3. DIAZEPAM [Concomitant]
     Indication: ANXIETY
     Dosage: 5 MG, UNK
     Route: 048
  4. AVELOX [Concomitant]
     Dosage: 1 TAB DAILY
     Route: 048
  5. PREDNISONE [Concomitant]
     Dosage: 2 MG, TID
     Route: 048
  6. TRASYLOL [Suspect]
     Indication: AORTIC VALVE REPLACEMENT
     Dosage: UNK
     Route: 042
     Dates: start: 20050414, end: 20050414

REACTIONS (14)
  - PAIN [None]
  - COMA [None]
  - MULTI-ORGAN FAILURE [None]
  - STRESS [None]
  - ANHEDONIA [None]
  - INJURY [None]
  - RENAL FAILURE [None]
  - UNEVALUABLE EVENT [None]
  - DEATH [None]
  - RENAL IMPAIRMENT [None]
  - RENAL INJURY [None]
  - EMOTIONAL DISTRESS [None]
  - ANXIETY [None]
  - FEAR [None]
